FAERS Safety Report 15675619 (Version 1)
Quarter: 2018Q4

REPORT INFORMATION
  Report Type: Spontaneous
  Country: NL (occurrence: NL)
  Receive Date: 20181130
  Receipt Date: 20181130
  Transmission Date: 20190205
  Serious: Yes (Hospitalization)
  Sender: FDA-Public Use
  Company Number: NL-TEVA-2018-NL-980922

PATIENT
  Age: 16 Year
  Sex: Male
  Weight: 74 kg

DRUGS (1)
  1. ISOTRETINOINE CAPSULE, 20 MG (MILLIGRAM) [Suspect]
     Active Substance: ISOTRETINOIN
     Indication: ACNE
     Dosage: 20 MILLIGRAM DAILY; 1D 1PC
     Dates: start: 20180924, end: 20181029

REACTIONS (3)
  - Pyrexia [Recovering/Resolving]
  - Petechiae [Recovering/Resolving]
  - Abdominal pain [Recovering/Resolving]

NARRATIVE: CASE EVENT DATE: 20181029
